FAERS Safety Report 13093575 (Version 2)
Quarter: 2017Q1

REPORT INFORMATION
  Report Type: Spontaneous
  Country: US (occurrence: US)
  Receive Date: 20170106
  Receipt Date: 20170123
  Transmission Date: 20170428
  Serious: Yes (Other)
  Sender: FDA-Public Use
  Company Number: US-LUNDBECK-DKLU2023933

PATIENT
  Age: 56 Year
  Sex: Female
  Weight: 98 kg

DRUGS (3)
  1. ONFI [Suspect]
     Active Substance: CLOBAZAM
     Indication: EPILEPSY
  2. ONFI [Suspect]
     Active Substance: CLOBAZAM
     Indication: COMPLEX PARTIAL SEIZURES
     Route: 065
     Dates: start: 20151124, end: 2016
  3. ONFI [Suspect]
     Active Substance: CLOBAZAM
     Indication: STATUS EPILEPTICUS

REACTIONS (2)
  - Cheilosis [Unknown]
  - Breast cancer [Recovering/Resolving]

NARRATIVE: CASE EVENT DATE: 201611
